FAERS Safety Report 16556129 (Version 4)
Quarter: 2019Q4

REPORT INFORMATION
  Report Type: Spontaneous
  Country: US (occurrence: US)
  Receive Date: 20190710
  Receipt Date: 20191015
  Transmission Date: 20200122
  Serious: Yes (Hospitalization)
  Sender: FDA-Public Use
  Company Number: US-CELGENEUS-USA-20190702044

PATIENT
  Age: 82 Year
  Sex: Female
  Weight: 68.3 kg

DRUGS (35)
  1. AZACITIDINE. [Suspect]
     Active Substance: AZACITIDINE
     Dosage: 37 MILLIGRAM/SQ. METER
     Route: 041
     Dates: start: 20181011, end: 20190109
  2. AZACITIDINE. [Suspect]
     Active Substance: AZACITIDINE
     Dosage: 37.65 MILLIGRAM/SQ. METER
     Route: 041
     Dates: start: 20190220, end: 20190220
  3. VENETOCLAX. [Concomitant]
     Active Substance: VENETOCLAX
     Dosage: 400 MILLIGRAM
     Route: 048
     Dates: start: 20180428, end: 20190624
  4. ACETYLCYSTEINE. [Concomitant]
     Active Substance: ACETYLCYSTEINE
     Indication: CHRONIC OBSTRUCTIVE PULMONARY DISEASE
     Dosage: 600 MILLIGRAM
     Route: 048
     Dates: start: 201707
  5. CALCIUM CARBONATE. [Concomitant]
     Active Substance: CALCIUM CARBONATE
     Indication: GASTROOESOPHAGEAL REFLUX DISEASE
     Dosage: 500 MILLIGRAM
     Route: 048
     Dates: start: 20180426
  6. LIDOCAINE. [Concomitant]
     Active Substance: LIDOCAINE
     Indication: PAIN
     Dosage: 2.5 PERCENT
     Route: 061
     Dates: start: 20190216
  7. DICLOFENAC SODIUM. [Concomitant]
     Active Substance: DICLOFENAC SODIUM
     Indication: MUSCULOSKELETAL PAIN
     Dosage: 1 PERCENT
     Route: 061
     Dates: start: 201902
  8. AZACITIDINE. [Suspect]
     Active Substance: AZACITIDINE
     Dosage: 37.87 MILLIGRAM/SQ. METER
     Route: 041
     Dates: start: 20190214, end: 20190214
  9. AZACITIDINE. [Suspect]
     Active Substance: AZACITIDINE
     Dosage: 37 MILLIGRAM/SQ. METER
     Route: 041
     Dates: start: 20190216, end: 20190217
  10. VENETOCLAX. [Concomitant]
     Active Substance: VENETOCLAX
     Indication: ACUTE MYELOID LEUKAEMIA
     Dosage: 100 MILLIGRAM
     Route: 048
     Dates: start: 20180426, end: 20180426
  11. SERTRALINE HYDROCHLORIDE. [Concomitant]
     Active Substance: SERTRALINE HYDROCHLORIDE
     Indication: DEPRESSION
     Dosage: 50 MILLIGRAM
     Route: 048
     Dates: start: 2014
  12. HYDROCORTISONE. [Concomitant]
     Active Substance: HYDROCORTISONE
     Indication: PRURITUS
     Dosage: 1 APPLICATION
     Route: 061
     Dates: start: 20180501
  13. OMEPRAZOLE. [Concomitant]
     Active Substance: OMEPRAZOLE
     Indication: PROPHYLAXIS
     Dosage: 40 MILLIGRAM
     Route: 048
     Dates: start: 20180514
  14. AZACITIDINE. [Suspect]
     Active Substance: AZACITIDINE
     Dosage: 75 MILLIGRAM/SQ. METER
     Route: 041
     Dates: start: 20180606, end: 20181010
  15. AZACITIDINE. [Suspect]
     Active Substance: AZACITIDINE
     Dosage: 37.86 MILLIGRAM/SQ. METER
     Route: 041
     Dates: start: 20190215, end: 20190215
  16. AZACITIDINE. [Suspect]
     Active Substance: AZACITIDINE
     Dosage: 37.35 MILLIGRAM/SQ. METER
     Route: 041
     Dates: start: 20190219, end: 20190219
  17. AZACITIDINE. [Suspect]
     Active Substance: AZACITIDINE
     Dosage: 37.5 MILLIGRAM/SQ. METER
     Route: 041
     Dates: start: 20190328
  18. ACETYLSALICYLIC ACID [Concomitant]
     Active Substance: ASPIRIN
     Indication: CORONARY ARTERY DISEASE
     Dosage: 81 MILLIGRAM
     Route: 048
     Dates: start: 2015
  19. AZACITIDINE. [Suspect]
     Active Substance: AZACITIDINE
     Indication: ACUTE MYELOID LEUKAEMIA
     Dosage: 75 MILLIGRAM/SQ. METER
     Route: 058
     Dates: start: 20180426, end: 20180502
  20. SENNA ALEXANDRINA [Concomitant]
     Active Substance: SENNA LEAF
     Indication: CONSTIPATION
     Dosage: 2 TABLET
     Route: 048
     Dates: start: 20180428
  21. MAGNESIUM HYDROXIDE. [Concomitant]
     Active Substance: MAGNESIUM HYDROXIDE
     Indication: CONSTIPATION PROPHYLAXIS
     Dosage: 30 MILLILITER
     Route: 048
     Dates: start: 20180430
  22. VENETOCLAX. [Concomitant]
     Active Substance: VENETOCLAX
     Dosage: 200 MILLIGRAM
     Route: 048
     Dates: start: 20180427, end: 20180427
  23. METOPROLOL. [Concomitant]
     Active Substance: METOPROLOL
     Indication: HYPERTENSION
     Dosage: 12.5 MILLIGRAM
     Route: 048
     Dates: start: 2014
  24. OXYGEN. [Concomitant]
     Active Substance: OXYGEN
     Indication: CHRONIC OBSTRUCTIVE PULMONARY DISEASE
     Dosage: 3 LITERS
     Route: 055
     Dates: start: 2015
  25. MELATONIN [Concomitant]
     Active Substance: MELATONIN
     Indication: INSOMNIA
     Dosage: 6 MILLIGRAM
     Route: 061
     Dates: start: 20190321
  26. UMECLIDINIUM W/VILANTEROL [Concomitant]
     Indication: CHRONIC OBSTRUCTIVE PULMONARY DISEASE
     Dosage: 1 PUFF
     Route: 055
     Dates: start: 20180426
  27. NYSTATIN. [Concomitant]
     Active Substance: NYSTATIN
     Indication: INFECTION PROPHYLAXIS
     Dosage: 500,000 UNITS/ML
     Route: 048
     Dates: start: 20180514
  28. BENZOCAINE. [Concomitant]
     Active Substance: BENZOCAINE
     Indication: MUCOSAL INFLAMMATION
     Dosage: 1 LOZENGE
     Route: 048
     Dates: start: 20180519
  29. CLOPIDOGREL [Concomitant]
     Active Substance: CLOPIDOGREL BISULFATE
     Indication: THROMBOSIS PROPHYLAXIS
     Dosage: 75 MILLIGRAM
     Route: 048
     Dates: start: 20181210
  30. VENETOCLAX. [Concomitant]
     Active Substance: VENETOCLAX
     Dosage: 400 MILLIGRAM
     Route: 048
     Dates: start: 20190710
  31. VALSARTAN. [Concomitant]
     Active Substance: VALSARTAN
     Indication: HYPERTENSION
     Dosage: 80 MILLIGRAM
     Route: 048
     Dates: start: 2014
  32. AZACITIDINE. [Suspect]
     Active Substance: AZACITIDINE
     Dosage: 37.87 MILLIGRAM/SQ. METER
     Route: 041
     Dates: start: 20190218, end: 20190218
  33. CYANOCOBALAMIN. [Concomitant]
     Active Substance: CYANOCOBALAMIN
     Indication: VITAMIN SUPPLEMENTATION
     Dosage: 1000 MILLIGRAM
     Route: 048
     Dates: start: 20180426
  34. FLUTICASONE. [Concomitant]
     Active Substance: FLUTICASONE
     Indication: CHRONIC OBSTRUCTIVE PULMONARY DISEASE
     Dosage: 110 MILLIGRAM
     Route: 045
     Dates: start: 20180426
  35. ACYCLOVIR SODIUM. [Concomitant]
     Active Substance: ACYCLOVIR SODIUM
     Indication: INFECTION PROPHYLAXIS
     Dosage: 800 MILLIGRAM
     Route: 048
     Dates: start: 20180502

REACTIONS (1)
  - Clostridium difficile colitis [Recovered/Resolved]

NARRATIVE: CASE EVENT DATE: 20190624
